FAERS Safety Report 11187630 (Version 5)
Quarter: 2015Q3

REPORT INFORMATION
  Report Type: Spontaneous
  Country: US (occurrence: US)
  Receive Date: 20150615
  Receipt Date: 20150831
  Transmission Date: 20151125
  Serious: Yes (Other)
  Sender: FDA-Public Use
  Company Number: US-JNJFOC-20150600105

PATIENT
  Age: 84 Year
  Sex: Female
  Weight: 68.04 kg

DRUGS (8)
  1. XARELTO [Suspect]
     Active Substance: RIVAROXABAN
     Indication: PULMONARY EMBOLISM
     Dosage: FOR 1YEAR
     Route: 048
     Dates: start: 20140409, end: 20150527
  2. XARELTO [Suspect]
     Active Substance: RIVAROXABAN
     Indication: THROMBOSIS
     Dosage: FOR 1YEAR
     Route: 048
     Dates: start: 20140409, end: 20150527
  3. XARELTO [Suspect]
     Active Substance: RIVAROXABAN
     Indication: VENTRICULAR EXTRASYSTOLES
     Dosage: FOR 1YEAR
     Route: 048
     Dates: start: 20140409, end: 20150527
  4. OXYCODONE [Concomitant]
     Active Substance: OXYCODONE
     Indication: BACK PAIN
     Route: 048
     Dates: start: 2014
  5. PROTONIX [Concomitant]
     Active Substance: PANTOPRAZOLE SODIUM
     Indication: GASTRIC DISORDER
     Route: 065
     Dates: start: 201401
  6. ALDACTAZIDE [Concomitant]
     Active Substance: HYDROCHLOROTHIAZIDE\SPIRONOLACTONE
     Indication: CARDIAC DISORDER
     Dosage: 1/2 TABLET, 1 YEAR
     Route: 065
     Dates: start: 201401
  7. LOPRESSOR [Concomitant]
     Active Substance: METOPROLOL TARTRATE
     Indication: CARDIAC DISORDER
     Route: 065
     Dates: start: 2013
  8. ALDACTAZIDE [Concomitant]
     Active Substance: HYDROCHLOROTHIAZIDE\SPIRONOLACTONE
     Indication: DIURETIC THERAPY
     Dosage: 1/2 TABLET, 1 YEAR
     Route: 065
     Dates: start: 201401

REACTIONS (3)
  - Pruritus [Recovered/Resolved]
  - Melaena [Recovered/Resolved]
  - Renal atrophy [Unknown]

NARRATIVE: CASE EVENT DATE: 201504
